FAERS Safety Report 10584215 (Version 1)
Quarter: 2014Q4

REPORT INFORMATION
  Report Type: Spontaneous
  Country: US (occurrence: None)
  Receive Date: 20141113
  Receipt Date: 20141113
  Transmission Date: 20150529
  Serious: Yes (Other)
  Sender: FDA-Public Use
  Company Number: None

PATIENT
  Age: 24 Year
  Sex: Female
  Weight: 65.32 kg

DRUGS (1)
  1. MIFEPRISTONE [Suspect]
     Active Substance: MIFEPRISTONE
     Indication: ABORTION INDUCED
     Dosage: 3 PILLS?ONE TIME DOSE ?ORAL
     Route: 048
     Dates: start: 20141110, end: 20141110

REACTIONS (2)
  - Pregnancy [None]
  - Vaginal haemorrhage [None]

NARRATIVE: CASE EVENT DATE: 20141112
